FAERS Safety Report 24625719 (Version 2)
Quarter: 2024Q4

REPORT INFORMATION
  Report Type: Spontaneous
  Country: GB (occurrence: GB)
  Receive Date: 20241115
  Receipt Date: 20241125
  Transmission Date: 20250115
  Serious: Yes (Hospitalization, Other)
  Sender: PERRIGO
  Company Number: None

PATIENT
  Age: 23 Year
  Sex: Male
  Weight: 60 kg

DRUGS (2)
  1. IBUPROFEN [Suspect]
     Active Substance: IBUPROFEN
     Indication: Pyrexia
     Dosage: 6 (200MG) DOSAGE FORM, QD
     Route: 065
     Dates: start: 2024, end: 20241030
  2. IBUPROFEN [Suspect]
     Active Substance: IBUPROFEN
     Indication: Lower respiratory tract infection

REACTIONS (5)
  - Upper gastrointestinal haemorrhage [Recovering/Resolving]
  - Melaena [Unknown]
  - Haemoptysis [Unknown]
  - Gastric ulcer [Unknown]
  - Haematemesis [Unknown]

NARRATIVE: CASE EVENT DATE: 20240101
